FAERS Safety Report 16249206 (Version 1)
Quarter: 2019Q2

REPORT INFORMATION
  Report Type: Spontaneous
  Country: DE (occurrence: DE)
  Receive Date: 20190429
  Receipt Date: 20190429
  Transmission Date: 20190711
  Serious: Yes (Hospitalization, Other)
  Sender: FDA-Public Use
  Company Number: DE-TEVA-2019-DE-1043541

PATIENT
  Age: 44 Year
  Sex: Male

DRUGS (20)
  1. MYCOPHENOLATE MOFETIL. [Suspect]
     Active Substance: MYCOPHENOLATE MOFETIL
     Dosage: SECOND CYCLE
     Route: 065
     Dates: start: 201306, end: 201307
  2. MYCOPHENOLATE MOFETIL. [Suspect]
     Active Substance: MYCOPHENOLATE MOFETIL
     Dosage: THIRD CYCLE
     Route: 065
     Dates: start: 201408, end: 201409
  3. OCTANATE [Concomitant]
     Active Substance: ANTIHEMOPHILIC FACTOR HUMAN
     Indication: IMMUNE TOLERANCE INDUCTION
     Dosage: FIRST CYCLE
     Route: 065
     Dates: start: 201301, end: 201303
  4. MYCOPHENOLATE MOFETIL. [Suspect]
     Active Substance: MYCOPHENOLATE MOFETIL
     Route: 065
     Dates: start: 201505, end: 201506
  5. PREDNISOLONE. [Suspect]
     Active Substance: PREDNISOLONE
     Dosage: SECOND CYCLE
     Route: 065
     Dates: start: 201306, end: 201307
  6. PREDNISOLONE. [Suspect]
     Active Substance: PREDNISOLONE
     Indication: IMMUNOSUPPRESSANT DRUG THERAPY
     Dosage: FIRST CYCLE
     Route: 065
     Dates: start: 201301, end: 201303
  7. LAMIVUDINE. [Concomitant]
     Active Substance: LAMIVUDINE
     Indication: PROPHYLAXIS
     Route: 065
  8. OCTANATE [Concomitant]
     Active Substance: ANTIHEMOPHILIC FACTOR HUMAN
     Dosage: FOURTH CYCLE
     Route: 065
     Dates: start: 201502
  9. MYCOPHENOLATE MOFETIL. [Suspect]
     Active Substance: MYCOPHENOLATE MOFETIL
     Route: 065
     Dates: start: 201502
  10. PREDNISOLONE. [Suspect]
     Active Substance: PREDNISOLONE
     Dosage: FIFTH CYCLE
     Route: 065
     Dates: start: 201505, end: 201506
  11. AMPHOTERICIN B. [Concomitant]
     Active Substance: AMPHOTERICIN B
     Indication: INFECTION PROPHYLAXIS
     Dosage: 4 X 100 MG
     Route: 065
  12. OCTANATE [Concomitant]
     Active Substance: ANTIHEMOPHILIC FACTOR HUMAN
     Dosage: FIFTH CYCLE
     Route: 065
     Dates: start: 201505, end: 201506
  13. PREDNISOLONE. [Suspect]
     Active Substance: PREDNISOLONE
     Dosage: THIRD CYCLE
     Route: 065
     Dates: start: 201408, end: 201409
  14. MYCOPHENOLATE MOFETIL. [Suspect]
     Active Substance: MYCOPHENOLATE MOFETIL
     Indication: IMMUNOSUPPRESSANT DRUG THERAPY
     Dosage: FIRST CYCLE
     Route: 065
     Dates: start: 201301, end: 201303
  15. PREDNISOLONE. [Suspect]
     Active Substance: PREDNISOLONE
     Dosage: CONTINUED AFTER MBMP CYCLE
     Route: 065
  16. OCTANATE [Concomitant]
     Active Substance: ANTIHEMOPHILIC FACTOR HUMAN
     Dosage: THIRD CYCLE
     Route: 065
     Dates: start: 201408, end: 201409
  17. MYCOPHENOLATE MOFETIL. [Suspect]
     Active Substance: MYCOPHENOLATE MOFETIL
     Dosage: CONTINUED AFTER MBMP CYCLE
     Route: 065
  18. PREDNISOLONE. [Suspect]
     Active Substance: PREDNISOLONE
     Dosage: FOURTH CYCLE
     Route: 065
     Dates: start: 201502
  19. COTRIMOXAZOLE [Concomitant]
     Active Substance: SULFAMETHOXAZOLE\TRIMETHOPRIM
     Indication: INFECTION PROPHYLAXIS
     Route: 065
  20. OCTANATE [Concomitant]
     Active Substance: ANTIHEMOPHILIC FACTOR HUMAN
     Dosage: SECOND CYCLE
     Route: 065
     Dates: start: 201306, end: 201307

REACTIONS (1)
  - Hepatitis E [Recovered/Resolved]
